FAERS Safety Report 9966484 (Version 2)
Quarter: 2014Q1

REPORT INFORMATION
  Report Type: Report from Study
  Country: US (occurrence: US)
  Receive Date: 20140305
  Receipt Date: 20140305
  Transmission Date: 20141002
  Serious: No
  Sender: FDA-Public Use
  Company Number: US-ABBVIE-12P-163-0951332-00

PATIENT
  Age: 28 Year
  Sex: Female

DRUGS (3)
  1. HUMIRA [Suspect]
     Indication: COLITIS ULCERATIVE
     Route: 058
     Dates: start: 20120331
  2. KARIVA [Concomitant]
     Indication: CONTRACEPTION
     Route: 048
  3. IRON [Concomitant]
     Indication: ANAEMIA
     Route: 048

REACTIONS (14)
  - Injection site papule [Not Recovered/Not Resolved]
  - Injection site rash [Not Recovered/Not Resolved]
  - Headache [Not Recovered/Not Resolved]
  - Vomiting [Unknown]
  - Injection site reaction [Unknown]
  - Paraesthesia [Unknown]
  - Myalgia [Not Recovered/Not Resolved]
  - Painful respiration [Not Recovered/Not Resolved]
  - Hypoaesthesia [Unknown]
  - Injection site erythema [Recovered/Resolved]
  - Drug ineffective [Not Recovered/Not Resolved]
  - Injection site erythema [Not Recovered/Not Resolved]
  - Injection site swelling [Not Recovered/Not Resolved]
  - Incorrect dose administered [Not Recovered/Not Resolved]
